FAERS Safety Report 23482489 (Version 1)
Quarter: 2024Q1

REPORT INFORMATION
  Report Type: Spontaneous
  Country: US (occurrence: US)
  Receive Date: 20240205
  Receipt Date: 20240205
  Transmission Date: 20240410
  Serious: No
  Sender: FDA-Public Use
  Company Number: US-JNJFOC-20240133862

PATIENT
  Age: 49 Year
  Sex: Female

DRUGS (12)
  1. STELARA [Suspect]
     Active Substance: USTEKINUMAB
     Indication: Psoriasis
     Route: 058
     Dates: start: 20210825
  2. CYCLOSPORINE [Concomitant]
     Active Substance: CYCLOSPORINE
  3. GABAPENTIN [Concomitant]
     Active Substance: GABAPENTIN
  4. HUMIRA [Concomitant]
     Active Substance: ADALIMUMAB
  5. HYDROCODONE [Concomitant]
     Active Substance: HYDROCODONE
  6. KETOCONAZOLE [Concomitant]
     Active Substance: KETOCONAZOLE
  7. LEVOTHYROXINE [Concomitant]
     Active Substance: LEVOTHYROXINE\LEVOTHYROXINE SODIUM
  8. OMEPRAZOLE [Concomitant]
     Active Substance: OMEPRAZOLE
  9. NABUMETONE [Concomitant]
     Active Substance: NABUMETONE
  10. PILOCARPINE [Concomitant]
     Active Substance: PILOCARPINE
  11. TIZANIDINE [Concomitant]
     Active Substance: TIZANIDINE
  12. ZOLPIDEM [Concomitant]
     Active Substance: ZOLPIDEM TARTRATE

REACTIONS (1)
  - Psoriasis [Not Recovered/Not Resolved]

NARRATIVE: CASE EVENT DATE: 20240101
